FAERS Safety Report 17903209 (Version 1)
Quarter: 2020Q2

REPORT INFORMATION
  Report Type: Spontaneous
  Country: ES (occurrence: ES)
  Receive Date: 20200617
  Receipt Date: 20200617
  Transmission Date: 20200714
  Serious: Yes (Other)
  Sender: FDA-Public Use
  Company Number: ES-TEVA-2020-ES-1455637

PATIENT
  Age: 70 Year
  Sex: Male

DRUGS (3)
  1. KALETRA [Interacting]
     Active Substance: LOPINAVIR\RITONAVIR
     Indication: COVID-19 PNEUMONIA
     Dosage: 4 DF
     Route: 048
     Dates: start: 20200331, end: 20200402
  2. HIDROXICLOROQUINA SULFATO (2143SU) [Suspect]
     Active Substance: HYDROXYCHLOROQUINE SULFATE
     Indication: COVID-19 PNEUMONIA
     Route: 048
     Dates: start: 20200329
  3. ATORVASTATINA MABO 40 MG COMPRIMIDOS RECUBIERTOS CON PELICULA EFG, 28 [Interacting]
     Active Substance: ATORVASTATIN CALCIUM
     Indication: COVID-19 PNEUMONIA
     Dosage: 40 MG
     Route: 048
     Dates: start: 202003, end: 20200402

REACTIONS (2)
  - Drug interaction [Unknown]
  - Hypertransaminasaemia [Recovering/Resolving]

NARRATIVE: CASE EVENT DATE: 20200401
